FAERS Safety Report 8830828 (Version 1)
Quarter: 2012Q4

REPORT INFORMATION
  Report Type: 
  Country: US (occurrence: US)
  Receive Date: 20121009
  Receipt Date: 20121009
  Transmission Date: 20130627
  Serious: No
  Sender: FDA-Public Use
  Company Number: US-PFIZER INC-2012249662

PATIENT
  Age: 62 Year
  Sex: Female
  Weight: 77.1 kg

DRUGS (9)
  1. LYRICA [Suspect]
     Indication: PAIN IN EXTREMITY
     Dosage: 75 mg, 2x/day
     Route: 048
     Dates: start: 2010
  2. LYRICA [Suspect]
     Dosage: 75 mg, 1x/day
     Route: 048
  3. LYRICA [Suspect]
     Dosage: 75 mg, 2x/day
     Route: 048
  4. GLYBURIDE [Concomitant]
     Dosage: 5 mg, 2x/day
  5. NOVOLOG MIX 70/30 [Concomitant]
     Indication: TYPE 1 DIABETES MELLITUS
     Dosage: 90 once a day
     Route: 058
  6. PAROXETINE [Concomitant]
     Dosage: 40 mg, 1x/day
     Route: 048
  7. CARVEDILOL [Concomitant]
     Dosage: 12.5 mg, 1x/day
     Route: 048
  8. FUROSEMIDE [Concomitant]
     Dosage: UNK
     Route: 048
  9. ASPIRIN [Concomitant]
     Dosage: 325 mg, 1x/day

REACTIONS (4)
  - Weight increased [Unknown]
  - Increased appetite [Unknown]
  - Nasopharyngitis [Recovering/Resolving]
  - Decreased activity [Unknown]
